FAERS Safety Report 19516963 (Version 1)
Quarter: 2021Q3

REPORT INFORMATION
  Report Type: Spontaneous
  Country: ES (occurrence: ES)
  Receive Date: 20210711
  Receipt Date: 20210711
  Transmission Date: 20211014
  Serious: No
  Sender: FDA-Public Use
  Company Number: ES-UCBSA-2021032885

PATIENT

DRUGS (1)
  1. NEUPRO [Suspect]
     Active Substance: ROTIGOTINE
     Indication: PRODUCT USED FOR UNKNOWN INDICATION
     Dosage: FORM STRENGTH: 2MG

REACTIONS (1)
  - Product adhesion issue [Unknown]
